FAERS Safety Report 9394980 (Version 2)
Quarter: 2013Q3

REPORT INFORMATION
  Report Type: Spontaneous
  Country: US (occurrence: US)
  Receive Date: 20130711
  Receipt Date: 20130827
  Transmission Date: 20140515
  Serious: Yes (Hospitalization)
  Sender: FDA-Public Use
  Company Number: US-ALLERGAN-1309954US

PATIENT
  Age: 74 Year
  Sex: Female
  Weight: 58.96 kg

DRUGS (6)
  1. RESTASIS [Suspect]
     Indication: DRY EYE
     Dosage: 1 DROP IN EACH EYE TWICE A DAY
     Route: 047
     Dates: start: 20120511
  2. MICARDIS [Concomitant]
     Indication: HYPERTENSION
     Dosage: UNK, IN THE MORNING
  3. LABETALOL [Concomitant]
     Indication: HYPERTENSION
     Dosage: UNK, IN THE MORNING AND EVENING
  4. CLONIDINE [Concomitant]
     Indication: HYPERTENSION
     Dosage: UNK, IN THE MORNING AND EVENING
  5. SYNTHROID [Concomitant]
     Indication: THYROID DISORDER
     Dosage: UNK, DAILY
  6. POTASSIUM CHLORIDE [Concomitant]
     Indication: MINERAL SUPPLEMENTATION
     Dosage: UNK, DAILY

REACTIONS (3)
  - Hip fracture [Recovered/Resolved]
  - Fall [Recovered/Resolved]
  - Arthritis [Unknown]
